FAERS Safety Report 10067728 (Version 3)
Quarter: 2014Q2

REPORT INFORMATION
  Report Type: Spontaneous
  Country: US (occurrence: None)
  Receive Date: 20140407
  Receipt Date: 20140516
  Transmission Date: 20141212
  Serious: Yes (Hospitalization)
  Sender: FDA-Public Use
  Company Number: UTC-046670

PATIENT
  Age: 42 Year
  Sex: Female
  Weight: 69.62 kg

DRUGS (3)
  1. REMODULIN [Suspect]
     Indication: PULMONARY ARTERIAL HYPERTENSION
     Dosage: 115.2 UG/KG (0.08 UG/KG, 1 IN 1 MIN)
     Dates: start: 20130703
  2. WARFARIN (WARFARIN) [Concomitant]
  3. SILDENAFIL (SILDENAFIL) [Concomitant]

REACTIONS (2)
  - Device dislocation [None]
  - Surgery [None]
